FAERS Safety Report 12368323 (Version 3)
Quarter: 2016Q2

REPORT INFORMATION
  Report Type: Spontaneous
  Country: JP (occurrence: JP)
  Receive Date: 20160513
  Receipt Date: 20160601
  Transmission Date: 20160815
  Serious: Yes (Death)
  Sender: FDA-Public Use
  Company Number: JP-CELGENEUS-JPN-2016052977

PATIENT
  Age: 63 Year
  Sex: Male
  Weight: 61 kg

DRUGS (11)
  1. GEMCITABINE HYDROCHLORIDE. [Suspect]
     Active Substance: GEMCITABINE HYDROCHLORIDE
     Indication: PANCREATIC CARCINOMA METASTATIC
     Route: 041
     Dates: start: 20151104
  2. DEXAMETHASONE SODIUM PHOSPHATE. [Concomitant]
     Active Substance: DEXAMETHASONE SODIUM PHOSPHATE
     Indication: PROPHYLAXIS OF NAUSEA AND VOMITING
     Route: 041
     Dates: start: 20151104, end: 20160330
  3. JUZENTAIHOTO [Concomitant]
     Indication: PLATELET COUNT DECREASED
  4. JUZENTAIHOTO [Concomitant]
     Indication: ANAEMIA
     Dosage: 30 MILLIGRAM
     Route: 048
     Dates: start: 20151111
  5. FENTANYL CITRATE. [Concomitant]
     Active Substance: FENTANYL CITRATE
     Indication: CANCER PAIN
     Dosage: 24 MICROGRAM
     Route: 065
     Dates: start: 20151225
  6. GEMCITABINE HYDROCHLORIDE. [Suspect]
     Active Substance: GEMCITABINE HYDROCHLORIDE
     Dosage: 1 TABLET
     Route: 041
     Dates: end: 20160330
  7. PALONOSETRON HYDROCHLORIDE. [Concomitant]
     Active Substance: PALONOSETRON HYDROCHLORIDE
     Indication: PROPHYLAXIS OF NAUSEA AND VOMITING
     Route: 041
     Dates: start: 20151104, end: 20160330
  8. EDOXABAN TOSILATE HYDRATE [Concomitant]
     Indication: PULMONARY EMBOLISM
     Dosage: .25 MILLIGRAM
     Route: 048
     Dates: start: 20151031
  9. LUBIPROSTONE [Concomitant]
     Active Substance: LUBIPROSTONE
     Indication: CONSTIPATION
     Dosage: 6.6 MILLIGRAM
     Route: 048
     Dates: start: 20151111
  10. ABRAXANE [Suspect]
     Active Substance: PACLITAXEL
     Indication: PANCREATIC CARCINOMA METASTATIC
     Route: 041
     Dates: start: 20151104
  11. ABRAXANE [Suspect]
     Active Substance: PACLITAXEL
     Dosage: 2 GRAM
     Route: 041
     Dates: end: 20160330

REACTIONS (1)
  - Interstitial lung disease [Fatal]

NARRATIVE: CASE EVENT DATE: 20160406
